FAERS Safety Report 18230489 (Version 1)
Quarter: 2020Q3

REPORT INFORMATION
  Report Type: Spontaneous
  Country: CH (occurrence: CH)
  Receive Date: 20200903
  Receipt Date: 20200903
  Transmission Date: 20201103
  Serious: Yes (Death, Life-Threatening, Other)
  Sender: FDA-Public Use
  Company Number: CH-ABBVIE-20K-151-3551604-00

PATIENT
  Age: 81 Year
  Sex: Male

DRUGS (3)
  1. PLAQUENIL [Suspect]
     Active Substance: HYDROXYCHLOROQUINE SULFATE
     Indication: COVID-19
     Route: 048
     Dates: start: 20200331, end: 20200331
  2. KALETRA [Suspect]
     Active Substance: LOPINAVIR\RITONAVIR
     Indication: COVID-19
     Route: 048
     Dates: start: 20200331, end: 20200402
  3. KALETRA [Suspect]
     Active Substance: LOPINAVIR\RITONAVIR
     Route: 048
     Dates: start: 20200331, end: 20200402

REACTIONS (6)
  - Hyperkalaemia [Recovered/Resolved]
  - Off label use [Recovered/Resolved]
  - COVID-19 [Fatal]
  - Electrocardiogram QT prolonged [Recovered/Resolved]
  - Hypokalaemia [Unknown]
  - Hyponatraemia [Recovered/Resolved]

NARRATIVE: CASE EVENT DATE: 2020
